FAERS Safety Report 4508073-2 (Version None)
Quarter: 2004Q4

REPORT INFORMATION
  Report Type: 
  Country: None (occurrence: None)
  Receive Date: 20041123
  Receipt Date: 20031008
  Transmission Date: 20050328
  Serious: No
  Sender: FDA-Public Use
  Company Number: US-GLAXOSMITHKLINE-A0429489A

PATIENT
  Age: 20 Year
  Sex: Male

DRUGS (2)
  1. WELLBUTRIN [Suspect]
     Indication: DEPRESSION
     Route: 048
     Dates: start: 20030830
  2. SONATA [Concomitant]

REACTIONS (2)
  - DISTURBANCE IN ATTENTION [None]
  - INSOMNIA [None]
